FAERS Safety Report 5148786-5 (Version None)
Quarter: 2006Q4

REPORT INFORMATION
  Report Type: 
  Country: None (occurrence: None)
  Receive Date: 20061107
  Receipt Date: 20061027
  Transmission Date: 20070319
  Serious: Yes (Other)
  Sender: FDA-Public Use
  Company Number: 06101905

PATIENT
  Age: 46 Year
  Sex: Male

DRUGS (3)
  1. CARBAMAZEPINE [Suspect]
     Indication: DRUG WITHDRAWAL MAINTENANCE THERAPY
     Dosage: ORAL
     Route: 048
  2. VENLAFAXINE HCL [Concomitant]
  3. LORAZEPAM [Concomitant]

REACTIONS (5)
  - DRUG HYPERSENSITIVITY [None]
  - HALLUCINATION, AUDITORY [None]
  - HEPATOTOXICITY [None]
  - PNEUMONIA [None]
  - RASH [None]
